FAERS Safety Report 25824967 (Version 1)
Quarter: 2025Q3

REPORT INFORMATION
  Report Type: Spontaneous
  Country: EU (occurrence: EU)
  Receive Date: 20250919
  Receipt Date: 20250919
  Transmission Date: 20251020
  Serious: Yes (Death, Life-Threatening, Hospitalization)
  Sender: ACCORD
  Company Number: EU-Accord-505562

PATIENT
  Age: 76 Year
  Sex: Male

DRUGS (6)
  1. QUETIAPINE [Suspect]
     Active Substance: QUETIAPINE
     Indication: Product used for unknown indication
     Dates: start: 202501
  2. TRAZODONE HYDROCHLORIDE [Suspect]
     Active Substance: TRAZODONE HYDROCHLORIDE
     Indication: Product used for unknown indication
  3. DULOXETINE HYDROCHLORIDE [Suspect]
     Active Substance: DULOXETINE HYDROCHLORIDE
     Indication: Product used for unknown indication
  4. GABAPENTIN [Suspect]
     Active Substance: GABAPENTIN
     Indication: Product used for unknown indication
  5. LORMETAZEPAM [Suspect]
     Active Substance: LORMETAZEPAM
     Indication: Product used for unknown indication
     Dosage: AT BEDTIME
  6. DIAZEPAM [Suspect]
     Active Substance: DIAZEPAM
     Indication: Product used for unknown indication

REACTIONS (9)
  - Neuroleptic malignant syndrome [Fatal]
  - Multi-organ disorder [Fatal]
  - Hypernatraemia [Fatal]
  - Cardiac arrest [Fatal]
  - Hypocalcaemia [Fatal]
  - Hypoxia [Fatal]
  - Renal failure [Fatal]
  - Haemodynamic instability [Fatal]
  - Hypokalaemia [Fatal]

NARRATIVE: CASE EVENT DATE: 20250101
